FAERS Safety Report 5650396-8 (Version None)
Quarter: 2008Q1

REPORT INFORMATION
  Report Type: 
  Country: None (occurrence: None)
  Receive Date: 20080304
  Receipt Date: 20080304
  Transmission Date: 20080703
  Serious: Yes (Other)
  Sender: FDA-Public Use
  Company Number: None

PATIENT
  Sex: Male
  Weight: 81.6475 kg

DRUGS (1)
  1. BACLOFEN 10 MG. CARACO [Suspect]
     Indication: MUSCLE SPASTICITY
     Dates: start: 20080222, end: 20080225

REACTIONS (3)
  - HYPOAESTHESIA [None]
  - MUSCLE SPASTICITY [None]
  - NO THERAPEUTIC RESPONSE [None]
